FAERS Safety Report 5129350-0 (Version None)
Quarter: 2006Q4

REPORT INFORMATION
  Report Type: 
  Country: None (occurrence: None)
  Receive Date: 20061012
  Receipt Date: 20060929
  Transmission Date: 20070319
  Serious: Yes (Hospitalization)
  Sender: FDA-Public Use
  Company Number: 2006075678

PATIENT
  Age: 50 Year
  Sex: Male

DRUGS (10)
  1. LINEZOLID [Suspect]
     Indication: ENTEROCOCCAL INFECTION
     Dosage: 1200 MG (600 MG, 2 IN 1 D); ORAL
     Route: 048
     Dates: start: 20060301, end: 20060428
  2. CIPROFLOXACIN [Concomitant]
  3. NEXIUM [Concomitant]
  4. FUROSEMIDE [Concomitant]
  5. SPIRIX (SPIRONOLACTONE) [Concomitant]
  6. ACETAMINOPHEN [Concomitant]
  7. THIAMIN (THIAMINE HYDROCHLORIDE) [Concomitant]
  8. DRUG, UNSPECIFIED [Concomitant]
  9. OXYCODONE HCL [Concomitant]
  10. VITAMIN B COMPLEX CAP [Concomitant]

REACTIONS (1)
  - THROMBOCYTOPENIA [None]
